FAERS Safety Report 5483284-0 (Version None)
Quarter: 2007Q4

REPORT INFORMATION
  Report Type: 
  Country: None (occurrence: None)
  Receive Date: 20071012
  Receipt Date: 20071001
  Transmission Date: 20080405
  Serious: Yes (Other)
  Sender: FDA-Public Use
  Company Number: PHBS2007JP16338

PATIENT
  Age: 42 Year
  Sex: Male

DRUGS (3)
  1. RITALIN [Suspect]
     Dosage: 10 MG, QD
     Route: 048
     Dates: start: 20040701, end: 20041001
  2. RITALIN [Suspect]
     Dosage: 30 MG/D
     Route: 048
     Dates: start: 20041001
  3. RITALIN [Suspect]
     Dosage: 700 MG/DAY
     Route: 048
     Dates: start: 20060113, end: 20060113

REACTIONS (5)
  - DELUSION [None]
  - DRUG ABUSER [None]
  - HALLUCINATION [None]
  - HOMICIDE [None]
  - PYROMANIA [None]
